FAERS Safety Report 14759809 (Version 3)
Quarter: 2019Q1

REPORT INFORMATION
  Report Type: Report from Study
  Country: US (occurrence: US)
  Receive Date: 20180413
  Receipt Date: 20190305
  Transmission Date: 20190417
  Serious: Yes (Other)
  Sender: FDA-Public Use
  Company Number: US-VIFOR (INTERNATIONAL) INC.-VIT-2017-05893

PATIENT
  Age: 73 Year
  Sex: Male
  Weight: 70.37 kg

DRUGS (19)
  1. ATENOLOL. [Concomitant]
     Active Substance: ATENOLOL
     Dosage: AT 8 PM
  2. FLUOROURACIL. [Concomitant]
     Active Substance: FLUOROURACIL
  3. MIRALAX [Concomitant]
     Active Substance: POLYETHYLENE GLYCOL 3350
     Dates: start: 20170418
  4. MAGNESIUM OXIDE. [Concomitant]
     Active Substance: MAGNESIUM OXIDE
     Dosage: EVERY MORNING
  5. VELTASSA [Suspect]
     Active Substance: PATIROMER
     Dates: start: 201902
  6. NEORAL [Concomitant]
     Active Substance: CYCLOSPORINE
  7. SODIUM POLYETHYLENE SULFONATE [Concomitant]
  8. ALENDRONATE [Concomitant]
     Active Substance: ALENDRONATE SODIUM
     Dosage: ONCE WEEKLY
  9. VELTASSA [Suspect]
     Active Substance: PATIROMER
     Indication: HYPERKALAEMIA
     Route: 048
     Dates: start: 20170418
  10. VELTASSA [Suspect]
     Active Substance: PATIROMER
     Dosage: ALTERNATE 8.4 G AND 16.8 G EVERY OTHER DAY
     Route: 048
     Dates: start: 20170914
  11. TAMSULOSIN [Concomitant]
     Active Substance: TAMSULOSIN
  12. VELTASSA [Suspect]
     Active Substance: PATIROMER
     Route: 048
     Dates: start: 20170722
  13. ATORVASTATIN [Concomitant]
     Active Substance: ATORVASTATIN
  14. CALCIUM WITH VITAMIN D [Concomitant]
     Active Substance: CALCIUM\VITAMIN D
     Dosage: TWICE DAILY
  15. MYCOPHENOLATE [Concomitant]
     Active Substance: MYCOPHENOLIC ACID
  16. TORSEMIDE. [Concomitant]
     Active Substance: TORSEMIDE
  17. VELTASSA [Suspect]
     Active Substance: PATIROMER
     Route: 048
     Dates: start: 20170503
  18. SUPREP BOWEL PREP [Concomitant]
     Active Substance: MAGNESIUM SULFATE\POTASSIUM SULFATE\SODIUM SULFATE
  19. CELLCEPT [Concomitant]
     Active Substance: MYCOPHENOLATE MOFETIL\MYCOPHENOLATE MOFETIL HYDROCHLORIDE

REACTIONS (11)
  - Urinary retention [Not Recovered/Not Resolved]
  - Product use issue [Unknown]
  - Blood potassium increased [Recovered/Resolved]
  - Product dose omission [Unknown]
  - Prostatic obstruction [Recovered/Resolved]
  - Faeces hard [Unknown]
  - Constipation [Not Recovered/Not Resolved]
  - Dyschezia [Unknown]
  - Diarrhoea [Recovered/Resolved]
  - Flatulence [Not Recovered/Not Resolved]
  - Inappropriate schedule of product administration [Unknown]

NARRATIVE: CASE EVENT DATE: 2017
